FAERS Safety Report 24759895 (Version 3)
Quarter: 2025Q3

REPORT INFORMATION
  Report Type: Spontaneous
  Country: US (occurrence: US)
  Receive Date: 20241220
  Receipt Date: 20250820
  Transmission Date: 20251021
  Serious: Yes (Other)
  Sender: TEVA
  Company Number: US-TEVA-VS-3216557

PATIENT
  Age: 33 Year
  Sex: Female
  Weight: 73 kg

DRUGS (4)
  1. NAPROXEN [Suspect]
     Active Substance: NAPROXEN
     Indication: Migraine
     Route: 048
     Dates: end: 202402
  2. SUMATRIPTAN [Suspect]
     Active Substance: SUMATRIPTAN
     Indication: Migraine
     Route: 048
  3. SUMATRIPTAN [Suspect]
     Active Substance: SUMATRIPTAN
     Indication: Migraine
     Route: 058
  4. BOTOX [Suspect]
     Active Substance: ONABOTULINUMTOXINA
     Indication: Migraine prophylaxis
     Route: 030
     Dates: start: 2016

REACTIONS (11)
  - Gestational diabetes [Not Recovered/Not Resolved]
  - Back pain [Recovered/Resolved]
  - Normal newborn [Unknown]
  - Maternal exposure during pregnancy [Unknown]
  - Haemorrhage urinary tract [Unknown]
  - Maternal exposure before pregnancy [Unknown]
  - Abdominal pain [Recovered/Resolved]
  - Urine odour abnormal [Unknown]
  - Urinary tract infection [Unknown]
  - Maternal exposure during breast feeding [Unknown]
  - Blood urine present [Unknown]

NARRATIVE: CASE EVENT DATE: 20240101
